FAERS Safety Report 5961927-2 (Version None)
Quarter: 2008Q4

REPORT INFORMATION
  Report Type: 
  Country: None (occurrence: None)
  Receive Date: 20081119
  Receipt Date: 20080804
  Transmission Date: 20090506
  Serious: No
  Sender: FDA-Public Use
  Company Number: WAES 0807USA03562

PATIENT
  Age: 49 Year
  Sex: Male
  Weight: 106.5953 kg

DRUGS (16)
  1. JANUVIA [Suspect]
     Indication: DIABETES MELLITUS
     Dosage: 100 MG/DAILY/PO
     Route: 048
     Dates: start: 20080710, end: 20080715
  2. COUMADIN [Concomitant]
  3. CYMBALTA [Concomitant]
  4. DILAUDID [Concomitant]
  5. DURAGESIC-100 [Concomitant]
  6. FIBERCON [Concomitant]
  7. HUMULIN R [Concomitant]
  8. LIDODERM [Concomitant]
  9. NOVOLOG [Concomitant]
  10. REMERON [Concomitant]
  11. BACLOFEN [Concomitant]
  12. CALCIUM (UNSPECIFIED) [Concomitant]
  13. GABAPENTIN [Concomitant]
  14. METFORMIN HCL [Concomitant]
  15. VITAMINS (UNSPECIFIED) [Concomitant]
  16. ZOLPIDEM TARTRATE [Concomitant]

REACTIONS (4)
  - BLISTER [None]
  - DRY SKIN [None]
  - FEELING ABNORMAL [None]
  - RASH [None]
